FAERS Safety Report 17107520 (Version 1)
Quarter: 2019Q4

REPORT INFORMATION
  Report Type: Report from Study
  Country: US (occurrence: US)
  Receive Date: 20191204
  Receipt Date: 20191204
  Transmission Date: 20200122
  Serious: Yes (Life-Threatening, Hospitalization)
  Sender: FDA-Public Use
  Company Number: US-EMD SERONO-9132356

PATIENT
  Age: 54 Year
  Sex: Male

DRUGS (2)
  1. REBIF [Suspect]
     Active Substance: INTERFERON BETA-1A
     Indication: PRODUCT USED FOR UNKNOWN INDICATION
     Route: 058
     Dates: start: 20030127, end: 20180110
  2. REBIF [Suspect]
     Active Substance: INTERFERON BETA-1A
     Dosage: REBIJECT MINI
     Route: 058
     Dates: start: 20180207, end: 20190616

REACTIONS (6)
  - Insomnia [Recovered/Resolved]
  - Cardiac arrest [Recovered/Resolved]
  - Atrophy [Recovered/Resolved]
  - Myocardial infarction [Recovered/Resolved]
  - Post procedural infection [Recovered/Resolved]
  - Post-traumatic stress disorder [Recovered/Resolved]

NARRATIVE: CASE EVENT DATE: 2019
